FAERS Safety Report 18265400 (Version 1)
Quarter: 2020Q3

REPORT INFORMATION
  Report Type: Other
  Country: US (occurrence: US)
  Receive Date: 20200914
  Receipt Date: 20200914
  Transmission Date: 20201103
  Serious: No
  Sender: FDA-Public Use
  Company Number: US-LEADIANT BIOSCIENCES INC-2020STPI000172

PATIENT
  Sex: Female

DRUGS (15)
  1. CHLORTHALIDON [Concomitant]
     Active Substance: CHLORTHALIDONE
  2. GABAPENTIN. [Concomitant]
     Active Substance: GABAPENTIN
  3. DEXAMETH [Concomitant]
     Active Substance: DEXAMETHASONE
  4. METOPROL XL [Concomitant]
  5. OMEGA?3 FATTY ACIDS [Concomitant]
     Active Substance: OMEGA-3 FATTY ACIDS
  6. VITAMIN B12 [Concomitant]
     Active Substance: CYANOCOBALAMIN
  7. VITAMIN D3 [Concomitant]
     Active Substance: CHOLECALCIFEROL
  8. PHO?EX [Concomitant]
  9. GLEOSTINE [Concomitant]
     Active Substance: LOMUSTINE
  10. MULTIVITAMIN + MINERAL [Concomitant]
     Active Substance: MINERALS\VITAMINS
  11. NORTRIPTYLIN [Concomitant]
     Active Substance: NORTRIPTYLINE
  12. MATULANE [Suspect]
     Active Substance: PROCARBAZINE HYDROCHLORIDE
     Indication: BRAIN NEOPLASM MALIGNANT
     Dosage: 3 CAPSULES QD DYA 8?21 OF CYCLE
     Route: 048
     Dates: start: 20190926
  13. ELIQUIS [Concomitant]
     Active Substance: APIXABAN
  14. IRON [Concomitant]
     Active Substance: IRON
  15. ONDANSETRON [Concomitant]
     Active Substance: ONDANSETRON

REACTIONS (1)
  - Product administration interrupted [Not Recovered/Not Resolved]
